FAERS Safety Report 23332281 (Version 1)
Quarter: 2023Q4

REPORT INFORMATION
  Report Type: Spontaneous
  Country: US (occurrence: None)
  Receive Date: 20231222
  Receipt Date: 20231222
  Transmission Date: 20240110
  Serious: No
  Sender: FDA-Public Use
  Company Number: None

PATIENT

DRUGS (2)
  1. PROPOFOL [Suspect]
     Active Substance: PROPOFOL
  2. DEVICE [Suspect]
     Active Substance: DEVICE

REACTIONS (5)
  - Device alarm issue [None]
  - Device delivery system issue [None]
  - Oxygen saturation decreased [None]
  - Laryngeal mask airway insertion [None]
  - Device leakage [None]
